FAERS Safety Report 9288346 (Version 1)
Quarter: 2013Q2

REPORT INFORMATION
  Report Type: Spontaneous
  Country: US (occurrence: US)
  Receive Date: 20130514
  Receipt Date: 20130514
  Transmission Date: 20140414
  Serious: No
  Sender: FDA-Public Use
  Company Number: US-OPTIMER PHARMACEUTICALS, INC.-20110014

PATIENT
  Sex: 0

DRUGS (7)
  1. DIFICID [Suspect]
     Indication: CLOSTRIDIUM DIFFICILE COLITIS
     Dosage: 200 MG, BID
     Route: 048
     Dates: start: 20110806, end: 20110813
  2. DIGOXIN [Concomitant]
     Dosage: UNK
  3. MULTAQ [Concomitant]
     Dosage: UNK
  4. LIPITOR [Concomitant]
     Dosage: UNK
  5. FLAGYL [Concomitant]
  6. PEPCID AC [Concomitant]
     Dosage: UNK
     Dates: start: 201103
  7. FLORASTOR [Concomitant]
     Dosage: UNK
     Dates: start: 201103

REACTIONS (1)
  - Abdominal pain [Recovered/Resolved]
